FAERS Safety Report 4763373-6 (Version None)
Quarter: 2005Q3

REPORT INFORMATION
  Report Type: 
  Country: None (occurrence: None)
  Receive Date: 20050902
  Receipt Date: 20050823
  Transmission Date: 20060218
  Serious: Yes (Other)
  Sender: FDA-Public Use
  Company Number: US-GDP-0512206

PATIENT
  Age: 75 Year
  Sex: Female
  Weight: 43.9989 kg

DRUGS (9)
  1. METROGEL [Suspect]
     Indication: ROSACEA
     Dosage: 1 APP BID TP
     Route: 061
     Dates: start: 20050725, end: 20050823
  2. TETRACYCLINE [Concomitant]
  3. MIACALCIN [Concomitant]
  4. ASCORBIC ACID [Concomitant]
  5. ASCORBIC ACID [Concomitant]
  6. VITAMIN B-12 [Concomitant]
  7. VITAMIN E [Concomitant]
  8. ZINC [Concomitant]
  9. VYTORIN [Concomitant]

REACTIONS (2)
  - BLOOD PRESSURE INCREASED [None]
  - STOMACH DISCOMFORT [None]
